FAERS Safety Report 7957847-4 (Version None)
Quarter: 2011Q4

REPORT INFORMATION
  Report Type: 
  Country: None (occurrence: None)
  Receive Date: 20111205
  Receipt Date: 20111125
  Transmission Date: 20120403
  Serious: Yes (Hospitalization, Other)
  Sender: FDA-Public Use
  Company Number: IT-ASTRAZENECA-2011SE68469

PATIENT
  Age: 20014 Day
  Sex: Female

DRUGS (3)
  1. ANASTROZOLE [Concomitant]
  2. TAMOXIFEN [Concomitant]
  3. FASLODEX [Suspect]
     Indication: BREAST CANCER METASTATIC
     Dosage: FASLODEX 500 MG THREE TIMES A MONTH (DAYS 0 - 14 - 28)
     Route: 030
     Dates: start: 20111011, end: 20111109

REACTIONS (2)
  - STOMATITIS [None]
  - BLISTER [None]
